FAERS Safety Report 25389270 (Version 2)
Quarter: 2025Q3

REPORT INFORMATION
  Report Type: Spontaneous
  Country: US (occurrence: US)
  Receive Date: 20250603
  Receipt Date: 20250919
  Transmission Date: 20251021
  Serious: Yes (Other)
  Sender: COOPERSURGICAL
  Company Number: US-COOPERSURGICAL, INC.-2025CPS004516

PATIENT
  Sex: Female
  Weight: 82.086 kg

DRUGS (1)
  1. PARAGARD T 380A [Suspect]
     Active Substance: COPPER
     Indication: Contraception
     Route: 015
     Dates: start: 20080129

REACTIONS (19)
  - Reproductive complication associated with device [Not Recovered/Not Resolved]
  - Hysterectomy [Recovered/Resolved]
  - Cervical dysplasia [Unknown]
  - Procedural haemorrhage [Recovered/Resolved]
  - Device breakage [Recovered/Resolved]
  - Foreign body in reproductive tract [Recovered/Resolved]
  - Complication of device removal [Recovered/Resolved]
  - Embedded device [Recovered/Resolved]
  - Emotional distress [Not Recovered/Not Resolved]
  - Device issue [Recovered/Resolved]
  - Vulvovaginal pruritus [Unknown]
  - Dysuria [Unknown]
  - Procedural pain [Recovered/Resolved]
  - Dyspareunia [Unknown]
  - Vaginal discharge [Unknown]
  - Intermenstrual bleeding [Unknown]
  - Dysmenorrhoea [Unknown]
  - Menstruation irregular [Unknown]
  - Amenorrhoea [Unknown]

NARRATIVE: CASE EVENT DATE: 20140101
